FAERS Safety Report 22068125 (Version 2)
Quarter: 2023Q1

REPORT INFORMATION
  Report Type: Report from Study
  Country: US (occurrence: US)
  Receive Date: 20230307
  Receipt Date: 20230330
  Transmission Date: 20230417
  Serious: Yes (Other)
  Sender: FDA-Public Use
  Company Number: US-ABBVIE-4326590

PATIENT
  Sex: Male

DRUGS (1)
  1. IMBRUVICA [Suspect]
     Active Substance: IBRUTINIB
     Indication: Waldenstrom^s macroglobulinaemia
     Route: 048
     Dates: start: 20160309

REACTIONS (5)
  - Femur fracture [Recovering/Resolving]
  - Cerebrovascular accident [Recovering/Resolving]
  - Blood immunoglobulin M increased [Unknown]
  - Fall [Unknown]
  - Hernia [Unknown]

NARRATIVE: CASE EVENT DATE: 20220101
